FAERS Safety Report 12306385 (Version 2)
Quarter: 2016Q3

REPORT INFORMATION
  Report Type: Spontaneous
  Country: JP (occurrence: JP)
  Receive Date: 20160426
  Receipt Date: 20160704
  Transmission Date: 20161109
  Serious: Yes (Other)
  Sender: FDA-Public Use
  Company Number: JP-JNJFOC-20160420146

PATIENT
  Age: 48 Year
  Sex: Female

DRUGS (1)
  1. REMICADE [Suspect]
     Active Substance: INFLIXIMAB
     Indication: DERMATOMYOSITIS
     Route: 042

REACTIONS (11)
  - Therapeutic response unexpected [Unknown]
  - Pyrexia [Recovering/Resolving]
  - Panniculitis [Recovered/Resolved]
  - Human antichimeric antibody positive [Unknown]
  - Off label use [Unknown]
  - Strabismus [Recovered/Resolved]
  - Myalgia [Unknown]
  - Surgery [Unknown]
  - Infusion related reaction [Recovered/Resolved]
  - Product use issue [Unknown]
  - Drug ineffective [Unknown]
